FAERS Safety Report 5729251-0 (Version None)
Quarter: 2008Q2

REPORT INFORMATION
  Report Type: 
  Country: None (occurrence: None)
  Receive Date: 20080506
  Receipt Date: 20080425
  Transmission Date: 20081010
  Serious: Yes (Death)
  Sender: FDA-Public Use
  Company Number: US-NOVOPROD-270113

PATIENT
  Sex: Female
  Weight: 65.5 kg

DRUGS (6)
  1. NOVOLOG MIX 70/30 [Suspect]
     Indication: TYPE 2 DIABETES MELLITUS
     Dosage: 22 IU, BID
  2. NOVORAPID [Suspect]
     Dosage: 8 IU, QD
  3. CARDYL [Concomitant]
  4. ASPIRIN [Concomitant]
  5. DAFLON                             /00426001/ [Concomitant]
  6. IRBESARTAN [Concomitant]

REACTIONS (2)
  - CARDIAC ARREST [None]
  - FEELING ABNORMAL [None]
